FAERS Safety Report 10246272 (Version 1)
Quarter: 2014Q2

REPORT INFORMATION
  Report Type: Spontaneous
  Country: MY (occurrence: MY)
  Receive Date: 20140619
  Receipt Date: 20140619
  Transmission Date: 20141212
  Serious: Yes (Hospitalization)
  Sender: FDA-Public Use
  Company Number: MY-ASTELLAS-2014US007001

PATIENT
  Age: 54 Year
  Sex: Female

DRUGS (1)
  1. TARCEVA [Suspect]
     Indication: NON-SMALL CELL LUNG CANCER
     Route: 048
     Dates: start: 201405

REACTIONS (4)
  - Swelling face [Unknown]
  - Rash [Unknown]
  - Skin reaction [Unknown]
  - Blood blister [Unknown]
